FAERS Safety Report 19692840 (Version 1)
Quarter: 2021Q3

REPORT INFORMATION
  Report Type: Report from Study
  Country: DE (occurrence: DE)
  Receive Date: 20210812
  Receipt Date: 20210812
  Transmission Date: 20211014
  Serious: Yes (Hospitalization)
  Sender: FDA-Public Use
  Company Number: DE-MYLANLABS-2021M1050757

PATIENT
  Sex: Female

DRUGS (10)
  1. ROACTEMRA [Concomitant]
     Active Substance: TOCILIZUMAB
     Indication: PRODUCT USED FOR UNKNOWN INDICATION
     Dosage: 162 MG
     Route: 065
     Dates: start: 201611, end: 201612
  2. METHOTREXATE. [Suspect]
     Active Substance: METHOTREXATE
     Dosage: 7.5 MG
     Route: 065
  3. MABTHERA [Concomitant]
     Active Substance: RITUXIMAB
     Dosage: 1000 MG
     Route: 065
     Dates: start: 201801
  4. MABTHERA [Concomitant]
     Active Substance: RITUXIMAB
     Dosage: 1000 MG
     Route: 065
     Dates: start: 201810
  5. ORENCIA [Concomitant]
     Active Substance: ABATACEPT
     Indication: PRODUCT USED FOR UNKNOWN INDICATION
     Dosage: 125 MG
     Route: 065
     Dates: start: 201509, end: 201603
  6. RIXATHON [Suspect]
     Active Substance: RITUXIMAB
     Indication: RHEUMATOID ARTHRITIS
     Dosage: 1000 MG
     Route: 065
     Dates: start: 202003
  7. RIXATHON [Suspect]
     Active Substance: RITUXIMAB
     Dosage: 1000 MG
     Route: 065
     Dates: start: 201907
  8. MABTHERA [Concomitant]
     Active Substance: RITUXIMAB
     Indication: PRODUCT USED FOR UNKNOWN INDICATION
     Dosage: 1000 MG
     Route: 065
     Dates: start: 201707
  9. METHOTREXATE. [Suspect]
     Active Substance: METHOTREXATE
     Indication: PRODUCT USED FOR UNKNOWN INDICATION
     Dosage: 10 MG
     Route: 065
  10. HUMIRA [Concomitant]
     Active Substance: ADALIMUMAB
     Indication: PRODUCT USED FOR UNKNOWN INDICATION
     Dosage: 40 MG
     Route: 065
     Dates: start: 201412, end: 201508

REACTIONS (2)
  - Cataract [Not Recovered/Not Resolved]
  - Atrial fibrillation [Not Recovered/Not Resolved]

NARRATIVE: CASE EVENT DATE: 20200409
